FAERS Safety Report 14694757 (Version 1)
Quarter: 2018Q1

REPORT INFORMATION
  Report Type: Spontaneous
  Country: DE (occurrence: DE)
  Receive Date: 20180329
  Receipt Date: 20180329
  Transmission Date: 20180509
  Serious: Yes (Other)
  Sender: FDA-Public Use
  Company Number: DE-TEVA-2018-DE-872887

PATIENT
  Sex: Female
  Weight: 63 kg

DRUGS (1)
  1. CIPROFLOXACIN ABZ 500 MG FILMTABLETTEN [Suspect]
     Active Substance: CIPROFLOXACIN HYDROCHLORIDE
     Dosage: 1000 MILLIGRAM DAILY;
     Route: 048

REACTIONS (10)
  - Tendon discomfort [Unknown]
  - Hepatic fibrosis [Unknown]
  - Myalgia [Unknown]
  - Mental disorder [Unknown]
  - Myelofibrosis [Unknown]
  - Dyschezia [Unknown]
  - Haemorrhage [Unknown]
  - Arthralgia [Unknown]
  - Impaired gastric emptying [Unknown]
  - Connective tissue disorder [Unknown]
